FAERS Safety Report 13817193 (Version 2)
Quarter: 2017Q4

REPORT INFORMATION
  Report Type: Spontaneous
  Country: GB (occurrence: GB)
  Receive Date: 20170731
  Receipt Date: 20171113
  Transmission Date: 20180320
  Serious: Yes (Other)
  Sender: FDA-Public Use
  Company Number: PHFR2017GB006116

PATIENT
  Age: 32 Year
  Sex: Male

DRUGS (3)
  1. OXCARBAZEPINE. [Suspect]
     Active Substance: OXCARBAZEPINE
     Dosage: 300 MG, UNK
     Route: 065
  2. EPILIM [Concomitant]
     Active Substance: VALPROATE SODIUM
     Indication: PRODUCT USED FOR UNKNOWN INDICATION
     Dosage: 500 MG, BID (1000 MG, DAILY)
     Route: 065
  3. OXCARBAZEPINE. [Suspect]
     Active Substance: OXCARBAZEPINE
     Indication: PRODUCT USED FOR UNKNOWN INDICATION
     Dosage: 600 MG, BID
     Route: 065

REACTIONS (6)
  - Seizure [Unknown]
  - Seizure cluster [Unknown]
  - Generalised tonic-clonic seizure [Unknown]
  - Intentional product misuse [Unknown]
  - Anxiety [Unknown]
  - Insomnia [Unknown]
